FAERS Safety Report 5168081-8 (Version None)
Quarter: 2006Q4

REPORT INFORMATION
  Report Type: 
  Country: None (occurrence: None)
  Receive Date: 20061208
  Receipt Date: 20060919
  Transmission Date: 20070319
  Serious: No
  Sender: FDA-Public Use
  Company Number: US-GLAXOSMITHKLINE-A0620677A

PATIENT
  Age: 58 Year
  Sex: Female

DRUGS (8)
  1. AVANDAMET [Suspect]
     Dosage: 1TAB PER DAY
     Route: 048
     Dates: start: 20060908
  2. ATACAND [Concomitant]
  3. HYDROCHLOROTHIAZIDE [Concomitant]
  4. LOPID [Concomitant]
  5. RELAFEN [Concomitant]
  6. FLAXSEED OIL [Concomitant]
  7. CYMBALTA [Concomitant]
  8. SERAX [Concomitant]

REACTIONS (1)
  - DRUG INEFFECTIVE [None]
